FAERS Safety Report 21856463 (Version 1)
Quarter: 2023Q1

REPORT INFORMATION
  Report Type: Spontaneous
  Country: US (occurrence: US)
  Receive Date: 20230112
  Receipt Date: 20230112
  Transmission Date: 20230418
  Serious: Yes (Other)
  Sender: FDA-Public Use
  Company Number: US-BRISTOL-MYERS SQUIBB COMPANY-2023-004300

PATIENT
  Age: 57 Year
  Sex: Male

DRUGS (3)
  1. IDHIFA [Suspect]
     Active Substance: ENASIDENIB MESYLATE
     Indication: Product used for unknown indication
  2. LIVTENCITY [Concomitant]
     Active Substance: MARIBAVIR
     Indication: Product used for unknown indication
  3. VENCLEXTA [Concomitant]
     Active Substance: VENETOCLAX
     Indication: Product used for unknown indication

REACTIONS (1)
  - Cytomegalovirus viraemia [Unknown]
